FAERS Safety Report 9670470 (Version 1)
Quarter: 2013Q4

REPORT INFORMATION
  Report Type: Report from Study
  Country: US (occurrence: US)
  Receive Date: 20131106
  Receipt Date: 20131106
  Transmission Date: 20140711
  Serious: Yes (Other)
  Sender: FDA-Public Use
  Company Number: US-ROCHE-1297530

PATIENT
  Sex: Female

DRUGS (23)
  1. XOLAIR [Suspect]
     Indication: CHRONIC OBSTRUCTIVE PULMONARY DISEASE
     Route: 065
     Dates: start: 20131001
  2. ASPIRIN [Concomitant]
     Dosage: QARN
     Route: 048
  3. CALCITRIOL [Concomitant]
     Route: 065
  4. DOXYCYCLINE [Concomitant]
     Dosage: FOR 14 DAYS
     Route: 065
  5. PREDNISONE [Concomitant]
     Dosage: 4QDX3DAYS, 3QD X3DAYS, 2 QD X 3 DAYS, 1QD X 3 DAYS
     Route: 048
  6. DUONEB [Concomitant]
     Dosage: 0.5MG/3MG PER 3 ML NEBULIZER SOLUTION
     Route: 065
  7. HALCION [Concomitant]
     Dosage: AT BEDTIME
     Route: 048
  8. LASIX [Concomitant]
     Route: 048
  9. TRAMADOL [Concomitant]
     Dosage: PRN
     Route: 065
  10. SPIRIVA [Concomitant]
     Dosage: CAPSULES FOR INHALATION
     Route: 048
  11. BENZONATATE [Concomitant]
  12. MUCINEX [Concomitant]
  13. ADVAIR DISKUS [Concomitant]
     Dosage: 250-50 INHALATION POWDER
     Route: 065
  14. LEVOTHYROXINE SODIUM [Concomitant]
  15. DOXEPIN HCL [Concomitant]
     Dosage: QHS
     Route: 065
  16. ISOSORBIDE DINITRATE [Concomitant]
     Route: 065
  17. SIMVASTATIN [Concomitant]
  18. SINGULAIR [Concomitant]
     Route: 048
  19. VITAMIN D2 [Concomitant]
  20. WELCHOL [Concomitant]
     Route: 048
  21. TEMAZEPAM [Concomitant]
     Route: 065
  22. XANAX [Concomitant]
  23. AMLODIPINE [Concomitant]
     Route: 048

REACTIONS (3)
  - Chronic respiratory failure [Unknown]
  - Oedema peripheral [Unknown]
  - Fatigue [Unknown]
